FAERS Safety Report 6686118-1 (Version None)
Quarter: 2010Q2

REPORT INFORMATION
  Report Type: 
  Country: None (occurrence: None)
  Receive Date: 20100419
  Receipt Date: 20100409
  Transmission Date: 20101027
  Serious: Yes (Other)
  Sender: FDA-Public Use
  Company Number: JP-ASTRAZENECA-2010SE15320

PATIENT
  Age: 45 Year
  Sex: Male

DRUGS (4)
  1. XYLOCAINE [Suspect]
     Indication: LOCAL ANAESTHESIA
     Dates: start: 20100402, end: 20100402
  2. XYLOCAINE [Suspect]
     Dates: start: 20100402, end: 20100402
  3. ATELEC [Concomitant]
     Route: 048
     Dates: start: 20091201
  4. AMARYL [Concomitant]
     Route: 048
     Dates: start: 20091201

REACTIONS (5)
  - AGITATION [None]
  - CHEST DISCOMFORT [None]
  - DIZZINESS [None]
  - FEELING DRUNK [None]
  - LOGORRHOEA [None]
